FAERS Safety Report 25512852 (Version 1)
Quarter: 2025Q3

REPORT INFORMATION
  Report Type: Spontaneous
  Country: US (occurrence: US)
  Receive Date: 20250703
  Receipt Date: 20250703
  Transmission Date: 20251021
  Serious: Yes (Other)
  Sender: ELI LILLY AND COMPANY
  Company Number: US-ELI_LILLY_AND_COMPANY-US202507000974

PATIENT
  Age: 78 Year
  Sex: Male

DRUGS (2)
  1. ZEPBOUND [Suspect]
     Active Substance: TIRZEPATIDE
     Indication: Weight control
     Route: 065
     Dates: start: 20250504
  2. ZEPBOUND [Suspect]
     Active Substance: TIRZEPATIDE
     Route: 065
     Dates: start: 20250520

REACTIONS (6)
  - Cerebrovascular accident [Unknown]
  - Blood calcium increased [Unknown]
  - Blood sodium decreased [Unknown]
  - Disorientation [Unknown]
  - Dysphonia [Unknown]
  - Fatigue [Unknown]
